FAERS Safety Report 9356955 (Version 2)
Quarter: 2014Q2

REPORT INFORMATION
  Report Type: Spontaneous
  Country: IT (occurrence: IT)
  Receive Date: 20130620
  Receipt Date: 20140417
  Transmission Date: 20141212
  Serious: Yes (Disabling)
  Sender: FDA-Public Use
  Company Number: IT-ROCHE-1239031

PATIENT
  Age: 78 Year
  Sex: Female

DRUGS (5)
  1. BONDRONAT [Suspect]
     Indication: BREAST CANCER METASTATIC
     Route: 048
     Dates: start: 20100601, end: 20130601
  2. ALENDROS [Suspect]
     Indication: OSTEOPOROSIS
     Route: 048
     Dates: start: 20120115, end: 20120415
  3. ATENOLOL [Concomitant]
     Route: 065
     Dates: start: 2000
  4. PENTACOL [Concomitant]
     Route: 065
     Dates: start: 2008
  5. FEMARA [Concomitant]
     Route: 065
     Dates: start: 2010

REACTIONS (1)
  - Osteonecrosis [Not Recovered/Not Resolved]
